FAERS Safety Report 22191593 (Version 7)
Quarter: 2024Q1

REPORT INFORMATION
  Report Type: Spontaneous
  Country: CA (occurrence: CA)
  Receive Date: 20230410
  Receipt Date: 20240222
  Transmission Date: 20240410
  Serious: Yes (Other)
  Sender: FDA-Public Use
  Company Number: CA-CELLTRION INC.-2022CA009810

PATIENT

DRUGS (13)
  1. INFLECTRA [Suspect]
     Active Substance: INFLIXIMAB-DYYB
     Indication: Colitis ulcerative
     Dosage: 400 MG,  0, 2, 6, THEN EVERY 8 WEEKS
     Route: 042
     Dates: start: 20220510
  2. INFLECTRA [Suspect]
     Active Substance: INFLIXIMAB-DYYB
     Dosage: 400 MG,  0, 2, 6, THEN EVERY 8 WEEKS
     Route: 042
     Dates: start: 20220525
  3. INFLECTRA [Suspect]
     Active Substance: INFLIXIMAB-DYYB
     Dosage: 400 MG,  0, 2, 6, THEN EVERY 8 WEEKS
     Route: 042
     Dates: start: 20220815
  4. INFLECTRA [Suspect]
     Active Substance: INFLIXIMAB-DYYB
     Dosage: 400 MG,  0, 2, 6, THEN EVERY 8 WEEKS
     Route: 042
     Dates: start: 20221015
  5. INFLECTRA [Suspect]
     Active Substance: INFLIXIMAB-DYYB
     Dosage: 400 MG,  0, 2, 6, THEN EVERY 8 WEEKS
     Route: 042
     Dates: start: 20221205
  6. INFLECTRA [Suspect]
     Active Substance: INFLIXIMAB-DYYB
     Dosage: 400 MG, EVERY 8 WEEKS
     Route: 042
     Dates: start: 20230130
  7. INFLECTRA [Suspect]
     Active Substance: INFLIXIMAB-DYYB
     Dosage: 400 MG, EVERY 8 WEEKS
     Route: 042
     Dates: start: 20230328
  8. INFLECTRA [Suspect]
     Active Substance: INFLIXIMAB-DYYB
     Dosage: 800 MG, EVERY 6 WEEKS
     Route: 042
     Dates: start: 20230501
  9. INFLECTRA [Suspect]
     Active Substance: INFLIXIMAB-DYYB
     Dosage: 800 MG, EVERY 6 WEEKS
     Route: 042
     Dates: start: 20230725
  10. INFLECTRA [Suspect]
     Active Substance: INFLIXIMAB-DYYB
     Dosage: 800 MG, EVERY 6 WEEKS
     Route: 042
     Dates: start: 20230905
  11. INFLECTRA [Suspect]
     Active Substance: INFLIXIMAB-DYYB
     Dosage: 800 MG, EVERY 6 WEEKS
     Route: 042
     Dates: start: 20231017
  12. INFLECTRA [Suspect]
     Active Substance: INFLIXIMAB-DYYB
     Dosage: 800 MG, EVERY 6 WEEKS
     Route: 042
     Dates: start: 20240109
  13. INFLECTRA [Suspect]
     Active Substance: INFLIXIMAB-DYYB
     Dosage: 800 MG, EVERY 6 WEEKS (4 WEEKS AND 2 DAYS)
     Route: 042
     Dates: start: 20240208

REACTIONS (6)
  - Condition aggravated [Recovering/Resolving]
  - Blood pressure systolic increased [Unknown]
  - Off label use [Unknown]
  - Off label use [Unknown]
  - Intentional product use issue [Unknown]
  - Inappropriate schedule of product administration [Unknown]

NARRATIVE: CASE EVENT DATE: 20220101
